FAERS Safety Report 9844930 (Version 1)
Quarter: 2014Q1

REPORT INFORMATION
  Report Type: Spontaneous
  Country: JP (occurrence: None)
  Receive Date: 20140122
  Receipt Date: 20140122
  Transmission Date: 20141002
  Serious: Yes (Death)
  Sender: FDA-Public Use
  Company Number: DSJ-2014-00361

PATIENT
  Age: 79 Year
  Sex: Female
  Weight: 61.8 kg

DRUGS (6)
  1. OLMETEC [Suspect]
     Indication: PRODUCT USED FOR UNKNOWN INDICATION
     Route: 048
     Dates: end: 20130406
  2. MEVALOTIN [Suspect]
     Indication: PRODUCT USED FOR UNKNOWN INDICATION
     Route: 048
     Dates: end: 20130406
  3. LOXONIN [Suspect]
     Indication: FRACTURE
     Dosage: WHEN PAINFUL
     Route: 048
     Dates: end: 20130406
  4. FAMOTIDINE [Suspect]
     Indication: PRODUCT USED FOR UNKNOWN INDICATION
     Route: 048
     Dates: end: 20130406
  5. SOFALCONE [Suspect]
     Indication: PRODUCT USED FOR UNKNOWN INDICATION
     Route: 048
     Dates: end: 20130406
  6. SEVEVACUL (SENNOSIDE A+B) ( TABLET) (SENNOSIDE [Concomitant]

REACTIONS (5)
  - Hepatitis fulminant [None]
  - Depressed level of consciousness [None]
  - Drug-induced liver injury [None]
  - Prothrombin time shortened [None]
  - Blood pressure abnormal [None]
